FAERS Safety Report 7153326-5 (Version None)
Quarter: 2010Q4

REPORT INFORMATION
  Report Type: 
  Country: None (occurrence: None)
  Receive Date: 20101213
  Receipt Date: 20101207
  Transmission Date: 20110411
  Serious: Yes (Life-Threatening, Hospitalization, Other)
  Sender: FDA-Public Use
  Company Number: AU-ASTRAZENECA-2010SE58072

PATIENT
  Age: 0 Day
  Sex: Male
  Weight: 3.6 kg

DRUGS (10)
  1. SEROQUEL [Suspect]
     Indication: PSYCHOTIC DISORDER
     Dosage: STARTED BEFORE PREGNANCY
     Route: 064
  2. ALDOMET [Suspect]
     Indication: HYPERTENSION
     Dosage: STARTED IN FIRST TRIMESTER, STOPPED AT DELIVERY
     Route: 064
  3. COVERSYL [Concomitant]
     Indication: HYPERTENSION
     Dosage: STARTED AT PRE-PREGNANCY, STOPPED IN EARLY FIRST TRIMESTER
     Route: 064
  4. BLACKMORES P+BF FORMULA [Concomitant]
     Indication: VITAMIN SUPPLEMENTATION
     Dosage: STARTED AT BEGINNING OF PREGNANCY, STOPPED AT DELIVERY
     Route: 064
  5. FERROGRADUMET+C [Concomitant]
     Indication: ANTIEMETIC SUPPORTIVE CARE
     Dosage: STARTED AT BEGINNING OF PREGNANCY, STOPPED AT DELIVERY
     Route: 064
  6. PREDNISOLONE [Concomitant]
     Indication: ANTIINFLAMMATORY THERAPY
     Dosage: 5-40 MG AS REQUIRED, STARTED AT PRE-PREGNANCY
     Route: 064
  7. PREDNISOLONE [Concomitant]
     Indication: ANTIALLERGIC THERAPY
     Dosage: 5-40 MG AS REQUIRED, STARTED AT PRE-PREGNANCY
     Route: 064
  8. NOVORAPID [Concomitant]
     Indication: DIABETES MELLITUS
     Dosage: 12-58 UNITS, STARTED AT 27/40 WEEKS OF GESTATION, STOPPED AT DELIVERY
     Route: 064
  9. PROTOPHANE [Concomitant]
     Indication: DIABETES MELLITUS
     Dosage: 4-28 UNITS, STARTED AT 27/40 WEEKS OF GESTATION, STOPPED AT DELIVERY
     Route: 064
  10. STEMAZINE [Concomitant]
     Indication: ANTIEMETIC SUPPORTIVE CARE
     Dosage: STARTED AT BEGINNING OF PREGNANCY, STOPPED AT DELIVERY
     Route: 064

REACTIONS (2)
  - DRUG WITHDRAWAL SYNDROME NEONATAL [None]
  - PREMATURE BABY [None]
